FAERS Safety Report 8908709 (Version 2)
Quarter: 2012Q4

REPORT INFORMATION
  Report Type: 
  Country: JP (occurrence: JP)
  Receive Date: 20121030
  Receipt Date: 20121030
  Transmission Date: 20130627
  Serious: Yes (Death, Life-Threatening)
  Sender: FDA-Public Use
  Company Number: JP-009507513-2010SP035031

PATIENT
  Age: 63 Year
  Sex: Female

DRUGS (2)
  1. TEMODAL [Suspect]
     Indication: MIXED OLIGO-ASTROCYTOMA
     Dosage: 100 mg, qd
     Route: 048
     Dates: start: 20100121, end: 20100304
  2. FERON [Concomitant]
     Dosage: 6 million IU, qd
     Dates: start: 20100121, end: 20100217

REACTIONS (3)
  - Acute hepatitis B [Fatal]
  - Gastrointestinal haemorrhage [Unknown]
  - Lymphocyte count decreased [Unknown]
